FAERS Safety Report 6856494-5 (Version None)
Quarter: 2010Q3

REPORT INFORMATION
  Report Type: 
  Country: None (occurrence: None)
  Receive Date: 20100719
  Receipt Date: 20100706
  Transmission Date: 20110219
  Serious: Yes (Other)
  Sender: FDA-Public Use
  Company Number: IT-JNJFOC-20100704024

PATIENT

DRUGS (3)
  1. RISPERIDONE [Suspect]
     Indication: DRUG EXPOSURE DURING PREGNANCY
     Route: 064
  2. MARIJUANA [Suspect]
     Indication: DRUG EXPOSURE DURING PREGNANCY
     Route: 065
  3. NICOTINE [Suspect]
     Indication: DRUG EXPOSURE DURING PREGNANCY
     Route: 065

REACTIONS (4)
  - FEEDING DISORDER [None]
  - HYPERBILIRUBINAEMIA [None]
  - SMALL FOR DATES BABY [None]
  - TEMPERATURE REGULATION DISORDER [None]
